FAERS Safety Report 4575401-1 (Version None)
Quarter: 2005Q1

REPORT INFORMATION
  Report Type: 
  Country: None (occurrence: None)
  Receive Date: 20050128
  Receipt Date: 20050128
  Transmission Date: 20050727
  Serious: Yes (Hospitalization)
  Sender: FDA-Public Use
  Company Number: None

PATIENT
  Age: 20 Year
  Sex: Female
  Weight: 103 kg

DRUGS (1)
  1. PROPOFOL [Suspect]
     Indication: UTERINE DILATION AND CURETTAGE
     Dosage: 150 MG IV DURING OR
     Route: 042
     Dates: start: 20041217

REACTIONS (1)
  - PANCREATITIS [None]
